FAERS Safety Report 22041297 (Version 1)
Quarter: 2023Q1

REPORT INFORMATION
  Report Type: Spontaneous
  Country: GB (occurrence: GB)
  Receive Date: 20230227
  Receipt Date: 20230227
  Transmission Date: 20230417
  Serious: Yes (Other)
  Sender: FDA-Public Use
  Company Number: GB-SA-SAC20230224001508

PATIENT
  Age: 63 Year
  Sex: Male

DRUGS (1)
  1. DUPILUMAB [Suspect]
     Active Substance: DUPILUMAB
     Indication: Dermatitis atopic
     Dosage: UNK
     Route: 058
     Dates: start: 202110

REACTIONS (4)
  - Ocular surface disease [Recovered/Resolved]
  - Eczema [Recovered/Resolved]
  - Foreign body sensation in eyes [Recovered/Resolved]
  - Dry eye [Recovered/Resolved]
